FAERS Safety Report 6603970-6 (Version None)
Quarter: 2010Q1

REPORT INFORMATION
  Report Type: 
  Country: None (occurrence: None)
  Receive Date: 20100226
  Receipt Date: 20090330
  Transmission Date: 20100710
  Serious: No
  Sender: FDA-Public Use
  Company Number: A0776177A

PATIENT
  Sex: Female

DRUGS (5)
  1. LAMOTRIGINE [Suspect]
     Indication: BIPOLAR DISORDER
     Dosage: 200MG PER DAY
     Route: 048
     Dates: start: 20090101
  2. WELLBUTRIN XL [Concomitant]
  3. TRAZODONE HCL [Concomitant]
  4. ADDERALL XR 10 [Concomitant]
  5. ATIVAN [Concomitant]
     Indication: ANXIETY

REACTIONS (1)
  - MYALGIA [None]
